FAERS Safety Report 5744294-9 (Version None)
Quarter: 2008Q2

REPORT INFORMATION
  Report Type: 
  Country: None (occurrence: None)
  Receive Date: 20080520
  Receipt Date: 20080513
  Transmission Date: 20081010
  Serious: Yes (Hospitalization)
  Sender: FDA-Public Use
  Company Number: US-AVENTIS-200813057US

PATIENT
  Age: 63 Year
  Sex: Male

DRUGS (5)
  1. LANTUS [Suspect]
     Dosage: DOSE: 50-60
     Route: 058
     Dates: start: 20050101, end: 20080510
  2. COREG [Concomitant]
     Dosage: DOSE: UNK
  3. LASIX [Concomitant]
     Dosage: DOSE: UNK
  4. SPIRONOLACTONE [Concomitant]
     Dosage: DOSE: UNK
  5. WARFARIN [Concomitant]
     Dosage: DOSE: UNK

REACTIONS (1)
  - DYSPNOEA [None]
